FAERS Safety Report 17968583 (Version 1)
Quarter: 2020Q3

REPORT INFORMATION
  Report Type: Spontaneous
  Country: PL (occurrence: PL)
  Receive Date: 20200701
  Receipt Date: 20200701
  Transmission Date: 20201105
  Serious: Yes (Death, Hospitalization, Other)
  Sender: FDA-Public Use
  Company Number: NVSC2020PL175693

PATIENT
  Sex: Male

DRUGS (2)
  1. TELOTRISTAT. [Suspect]
     Active Substance: TELOTRISTAT
     Indication: PRODUCT USED FOR UNKNOWN INDICATION
     Route: 065
  2. SANDOSTATIN LAR DEPOT [Suspect]
     Active Substance: OCTREOTIDE ACETATE
     Indication: NEUROENDOCRINE CARCINOMA
     Dosage: UNK
     Route: 065
     Dates: end: 201706

REACTIONS (14)
  - Decreased appetite [Unknown]
  - Metastases to lymph nodes [Unknown]
  - Weight decreased [Unknown]
  - Metastases to liver [Unknown]
  - Pulmonary mass [Unknown]
  - Diarrhoea [Unknown]
  - Carcinoid syndrome [Unknown]
  - Dyspepsia [Unknown]
  - Erythema [Unknown]
  - Hot flush [Unknown]
  - Vascular occlusion [Unknown]
  - Death [Fatal]
  - Flushing [Unknown]
  - Blood chromogranin A increased [Unknown]

NARRATIVE: CASE EVENT DATE: 20140317
